FAERS Safety Report 7511495-9 (Version None)
Quarter: 2011Q2

REPORT INFORMATION
  Report Type: 
  Country: None (occurrence: None)
  Receive Date: 20110531
  Receipt Date: 20101111
  Transmission Date: 20111010
  Serious: No
  Sender: FDA-Public Use
  Company Number: US-NOVEN-ALL1-2010-05945

PATIENT
  Sex: Female
  Weight: 95.692 kg

DRUGS (2)
  1. DAYTRANA [Suspect]
     Dosage: 10 MG, ONE DOSE
     Route: 062
     Dates: start: 20101018, end: 20101018
  2. PRENATAL VITAMINS                  /01549301/ [Concomitant]
     Dosage: UNK, 1X/DAY:QD
     Route: 048
     Dates: start: 20101001

REACTIONS (2)
  - ACCIDENTAL EXPOSURE [None]
  - DRUG EXPOSURE DURING PREGNANCY [None]
